FAERS Safety Report 5454633-4 (Version None)
Quarter: 2007Q3

REPORT INFORMATION
  Report Type: 
  Country: None (occurrence: None)
  Receive Date: 20070917
  Receipt Date: 20060613
  Transmission Date: 20080115
  Serious: No
  Sender: FDA-Public Use
  Company Number: US-ASTRAZENECA-2006UW12618

PATIENT
  Age: 49 Year
  Sex: Male

DRUGS (6)
  1. SEROQUEL [Suspect]
     Indication: SCHIZOPHRENIA
     Dosage: 300MG QAM, 300MG PM, 600MG HS
     Route: 048
  2. ACTOS [Concomitant]
  3. DEPAKOTE [Concomitant]
  4. LEXAPRO [Concomitant]
  5. LOTREL [Concomitant]
  6. TOPROL-XL [Concomitant]

REACTIONS (8)
  - AGITATION [None]
  - ANXIETY [None]
  - ASTHENIA [None]
  - BLOOD GLUCOSE DECREASED [None]
  - DIABETES MELLITUS [None]
  - DIZZINESS [None]
  - PANIC REACTION [None]
  - SOMNOLENCE [None]
